FAERS Safety Report 13286895 (Version 1)
Quarter: 2017Q1

REPORT INFORMATION
  Report Type: Spontaneous
  Country: DE (occurrence: DE)
  Receive Date: 20170302
  Receipt Date: 20170302
  Transmission Date: 20170428
  Serious: Yes (Other)
  Sender: FDA-Public Use
  Company Number: DE-JNJFOC-20170222718

PATIENT
  Age: 39 Year
  Sex: Female

DRUGS (1)
  1. TOPAMAX [Suspect]
     Active Substance: TOPIRAMATE
     Indication: BENIGN INTRACRANIAL HYPERTENSION
     Dosage: 25MG-0-50MG
     Route: 048

REACTIONS (3)
  - Product use issue [Unknown]
  - Cushing^s syndrome [Unknown]
  - Off label use [Unknown]
